FAERS Safety Report 19013123 (Version 3)
Quarter: 2021Q2

REPORT INFORMATION
  Report Type: Spontaneous
  Country: CA (occurrence: CA)
  Receive Date: 20210316
  Receipt Date: 20210616
  Transmission Date: 20210717
  Serious: Yes (Hospitalization, Other)
  Sender: FDA-Public Use
  Company Number: CA-CELGENEUS-CAN-20210303365

PATIENT
  Age: 70 Year
  Sex: Male

DRUGS (3)
  1. REVLIMID [Suspect]
     Active Substance: LENALIDOMIDE
     Indication: PLASMA CELL MYELOMA
     Dosage: 10 MILLIGRAM
     Route: 048
  2. IXAZOMIB [Suspect]
     Active Substance: IXAZOMIB
     Route: 048
  3. IXAZOMIB [Suspect]
     Active Substance: IXAZOMIB
     Indication: PLASMA CELL MYELOMA
     Route: 048

REACTIONS (6)
  - Bradycardia [Recovered/Resolved]
  - Thrombocytopenia [Recovered/Resolved]
  - Appendiceal mucocoele [Recovered/Resolved]
  - Atrial flutter [Recovered/Resolved]
  - Platelet count decreased [Recovered/Resolved]
  - Peripheral swelling [Recovered/Resolved]
